FAERS Safety Report 11261750 (Version 1)
Quarter: 2015Q3

REPORT INFORMATION
  Report Type: Report from Study
  Country: CO (occurrence: CO)
  Receive Date: 20150710
  Receipt Date: 20150710
  Transmission Date: 20151125
  Serious: Yes (Hospitalization)
  Sender: FDA-Public Use
  Company Number: CO-BAXALTA-2015BAX032621

PATIENT
  Age: 24 Year
  Sex: Male
  Weight: 74 kg

DRUGS (8)
  1. OCTOCOG ALFA; BAXJECT II [Suspect]
     Active Substance: ANTIHEMOPHILIC FACTOR, HUMAN RECOMBINANT
     Dosage: 2500 IU, EVERY 8 HOURS, DAYS 4-6
     Dates: start: 20150406, end: 20150413
  2. OCTOCOG ALFA; BAXJECT II [Suspect]
     Active Substance: ANTIHEMOPHILIC FACTOR, HUMAN RECOMBINANT
     Indication: PROPHYLAXIS
     Dosage: 4000 IU, EVERY 8 HOURS, DAYS 1-3
     Dates: start: 20150406, end: 20150413
  3. OCTOCOG ALFA; BAXJECT II [Suspect]
     Active Substance: ANTIHEMOPHILIC FACTOR, HUMAN RECOMBINANT
     Dosage: 2000 IU, 3X A WEEK
     Route: 042
     Dates: start: 20150413, end: 201506
  4. IPRATROPIUM BROMIDE. [Concomitant]
     Active Substance: IPRATROPIUM BROMIDE
     Indication: BRONCHOSPASM
     Dosage: 0.02 MCG, 3X A DAY
     Route: 065
     Dates: start: 2010
  5. AMIKACINA [Concomitant]
     Indication: PRODUCT USED FOR UNKNOWN INDICATION
     Dosage: 100 MG, SINGLE DOSE
     Route: 065
     Dates: start: 20150405, end: 20150413
  6. OCTOCOG ALFA; BAXJECT II [Suspect]
     Active Substance: ANTIHEMOPHILIC FACTOR, HUMAN RECOMBINANT
     Indication: FACTOR VIII DEFICIENCY
     Dosage: 2000 IU, ONCE
     Route: 042
     Dates: start: 20150403, end: 20150403
  7. PREDNISOLONE. [Concomitant]
     Active Substance: PREDNISOLONE
     Indication: BRONCHOSPASM
     Dosage: 5 MG, 1X A DAY
     Route: 065
     Dates: start: 201403
  8. SALBUTAMOL [Concomitant]
     Active Substance: ALBUTEROL
     Indication: BRONCHOSPASM
     Dosage: 0.5 MCG, 3X A DAY
     Route: 065
     Dates: start: 2008

REACTIONS (1)
  - Appendicitis [Recovered/Resolved]

NARRATIVE: CASE EVENT DATE: 20150405
